FAERS Safety Report 9602801 (Version 1)
Quarter: 2013Q4

REPORT INFORMATION
  Report Type: Spontaneous
  Country: FR (occurrence: FR)
  Receive Date: 20131007
  Receipt Date: 20131007
  Transmission Date: 20140711
  Serious: Yes (Other)
  Sender: FDA-Public Use
  Company Number: FR-PFIZER INC-2013280410

PATIENT
  Age: 60 Year
  Sex: Female

DRUGS (7)
  1. FLUOROURACILE PFIZER [Suspect]
     Indication: ADENOCARCINOMA GASTRIC
     Dosage: UNK, CYCLIC
     Route: 041
     Dates: start: 20130710, end: 20130807
  2. OXALIPLATINE TEVA [Suspect]
     Indication: ADENOCARCINOMA GASTRIC
     Dosage: 140 MG DAILY PER CYCLE
     Route: 041
     Dates: start: 20130710, end: 20130807
  3. ZOPHREN [Suspect]
     Indication: PROPHYLAXIS OF NAUSEA AND VOMITING
     Dosage: UNK, CYCLIC
     Route: 042
     Dates: start: 20130710, end: 20130807
  4. EMEND [Suspect]
     Indication: PROPHYLAXIS OF NAUSEA AND VOMITING
     Dosage: UNK, CYCLIC
     Route: 048
     Dates: start: 20130710, end: 20130807
  5. SOLU-MEDROL [Concomitant]
  6. LEVOTHYROX [Concomitant]
     Dosage: 125 UG, DAILY
  7. FOLINIC ACID [Concomitant]
     Indication: ADENOCARCINOMA GASTRIC

REACTIONS (7)
  - Visual field defect [Recovered/Resolved]
  - Visual field defect [Recovered/Resolved]
  - Papilloedema [Unknown]
  - Optic neuropathy [Unknown]
  - Intracranial pressure increased [Unknown]
  - Paraesthesia [Unknown]
  - Vision blurred [Unknown]
